FAERS Safety Report 4552460-3 (Version None)
Quarter: 2005Q1

REPORT INFORMATION
  Report Type: 
  Country: None (occurrence: None)
  Receive Date: 20050114
  Receipt Date: 20040618
  Transmission Date: 20050727
  Serious: Yes (Death, Other)
  Sender: FDA-Public Use
  Company Number: US-BRISTOL-MYERS SQUIBB COMPANY-12619292

PATIENT
  Age: 61 Year
  Sex: Female

DRUGS (22)
  1. CISPLATIN [Suspect]
     Indication: LUNG CANCER METASTATIC
     Route: 042
     Dates: start: 20040205
  2. TAXOTERE [Suspect]
     Indication: LUNG CANCER METASTATIC
     Route: 042
     Dates: start: 20040205
  3. PROCRIT [Suspect]
     Indication: ANAEMIA OF MALIGNANT DISEASE
     Route: 058
     Dates: start: 20030423, end: 20040114
  4. MIRACLE MOUTHWASH [Concomitant]
  5. ACTOS [Concomitant]
     Route: 048
  6. SINGULAIR [Concomitant]
     Route: 048
  7. ZYRTEC [Concomitant]
     Route: 048
  8. LEVAQUIN [Concomitant]
     Route: 048
  9. QUININE [Concomitant]
     Route: 048
  10. COMBIVENT [Concomitant]
     Route: 055
  11. NU-IRON [Concomitant]
     Route: 048
  12. TOPROL-XL [Concomitant]
     Route: 048
  13. ECOTRIN [Concomitant]
     Route: 048
  14. TYLENOL [Concomitant]
     Route: 048
  15. LIBRIUM [Concomitant]
     Route: 048
  16. K-DUR 10 [Concomitant]
     Route: 048
  17. GUAIFED [Concomitant]
     Route: 048
  18. ZANTAC [Concomitant]
     Route: 048
  19. PREMARIN [Concomitant]
     Route: 048
  20. ADVAIR DISKUS 100/50 [Concomitant]
     Route: 055
  21. FOLTX [Concomitant]
     Route: 048
  22. VITAMIN B COMPLEX CAP [Concomitant]
     Route: 048

REACTIONS (2)
  - ANAEMIA [None]
  - LUNG CANCER METASTATIC [None]
